FAERS Safety Report 7509559-9 (Version None)
Quarter: 2011Q2

REPORT INFORMATION
  Report Type: 
  Country: None (occurrence: None)
  Receive Date: 20110527
  Receipt Date: 20110519
  Transmission Date: 20111010
  Serious: Yes (Life-Threatening, Other)
  Sender: FDA-Public Use
  Company Number: US-BAYER-201040899NA

PATIENT
  Sex: Female
  Weight: 58.957 kg

DRUGS (4)
  1. DARVOCET-N 50 [Concomitant]
  2. YAZ [Suspect]
     Indication: CONTRACEPTION
     Dosage: UNK UNK, QD
     Route: 048
  3. PROTONIX [Concomitant]
  4. MOBIC [Concomitant]

REACTIONS (6)
  - PAIN [None]
  - ASTHENIA [None]
  - GALLBLADDER NON-FUNCTIONING [None]
  - CHOLELITHIASIS [None]
  - ORGAN FAILURE [None]
  - FATIGUE [None]
